FAERS Safety Report 20637985 (Version 3)
Quarter: 2022Q2

REPORT INFORMATION
  Report Type: Spontaneous
  Country: US (occurrence: US)
  Receive Date: 20220325
  Receipt Date: 20220519
  Transmission Date: 20220720
  Serious: No
  Sender: FDA-Public Use
  Company Number: US-GSKCCFUS-Case-01329734_AE-77321

PATIENT
  Sex: Male

DRUGS (1)
  1. INCRUSE ELLIPTA [Suspect]
     Active Substance: UMECLIDINIUM BROMIDE
     Indication: Product used for unknown indication
     Dosage: UNK, 62.5MCG

REACTIONS (3)
  - Wheezing [Recovered/Resolved]
  - Therapeutic product effect decreased [Recovered/Resolved]
  - Product complaint [Unknown]
